FAERS Safety Report 6741403-X (Version None)
Quarter: 2010Q2

REPORT INFORMATION
  Report Type: 
  Country: None (occurrence: None)
  Receive Date: 20100526
  Receipt Date: 20100524
  Transmission Date: 20101027
  Serious: Yes (Hospitalization)
  Sender: FDA-Public Use
  Company Number: US-BRISTOL-MYERS SQUIBB COMPANY-15117377

PATIENT
  Age: 11 Year
  Sex: Female

DRUGS (5)
  1. ABILIFY [Suspect]
  2. CLONIDINE [Concomitant]
  3. TRAZODONE HCL [Concomitant]
  4. SYNTHROID [Concomitant]
  5. VYVANSE [Concomitant]

REACTIONS (3)
  - ABASIA [None]
  - DROOLING [None]
  - TREMOR [None]
